FAERS Safety Report 7883183-0 (Version None)
Quarter: 2011Q4

REPORT INFORMATION
  Report Type: 
  Country: None (occurrence: None)
  Receive Date: 20111101
  Receipt Date: 20111101
  Transmission Date: 20120403
  Serious: Yes (Hospitalization)
  Sender: FDA-Public Use
  Company Number: None

PATIENT
  Age: 29 Year
  Sex: Female
  Weight: 68.3 kg

DRUGS (1)
  1. BARIUM SULFATE [Suspect]
     Indication: PAIN
     Dosage: 450 ML ONCE PO
     Route: 048
     Dates: start: 20110921, end: 20110921

REACTIONS (4)
  - URTICARIA [None]
  - RASH [None]
  - HYPERSENSITIVITY [None]
  - PRURITUS [None]
